FAERS Safety Report 12328398 (Version 1)
Quarter: 2016Q2

REPORT INFORMATION
  Report Type: Spontaneous
  Country: SE (occurrence: SE)
  Receive Date: 20160503
  Receipt Date: 20160503
  Transmission Date: 20160815
  Serious: Yes (Death)
  Sender: FDA-Public Use
  Company Number: SE-PFIZER INC-2016237819

PATIENT
  Age: 48 Year
  Sex: Female

DRUGS (7)
  1. KETOGAN NOVUM [Concomitant]
     Dosage: 5 MG/ML, UNK
  2. STESOLID NOVUM [Concomitant]
     Dosage: 5 MG/ML, UNK
  3. DELTISON /00044701/ [Concomitant]
     Active Substance: PREDNISONE
     Dosage: 50 MG, UNK
  4. PRO-EPANUTIN [Suspect]
     Active Substance: FOSPHENYTOIN\FOSPHENYTOIN SODIUM
     Indication: SEIZURE
     Dosage: 1050 MG, UNK
     Route: 042
     Dates: start: 20160329, end: 20160329
  5. NEXIUM [Concomitant]
     Active Substance: ESOMEPRAZOLE MAGNESIUM
     Dosage: 40 MG, UNK
  6. CYKLOKAPRON [Concomitant]
     Active Substance: TRANEXAMIC ACID
     Dosage: UNK
  7. GLUKOS FRESENIUS KABI [Concomitant]
     Dosage: 300 MG/ML, UNK

REACTIONS (3)
  - Blood pressure decreased [Fatal]
  - Heart rate decreased [Fatal]
  - Cardiac arrest [Fatal]

NARRATIVE: CASE EVENT DATE: 20160329
